FAERS Safety Report 13459416 (Version 1)
Quarter: 2017Q2

REPORT INFORMATION
  Report Type: Spontaneous
  Country: PL (occurrence: PL)
  Receive Date: 20170419
  Receipt Date: 20170419
  Transmission Date: 20170830
  Serious: Yes (Hospitalization)
  Sender: FDA-Public Use
  Company Number: PL-BAUSCH-BL-2017-010258

PATIENT
  Age: 20 Year
  Sex: Female
  Weight: 70 kg

DRUGS (2)
  1. BIOTRAKSON [Suspect]
     Active Substance: CEFTRIAXONE SODIUM
     Indication: INFLAMMATION
     Route: 042
     Dates: start: 20170219, end: 20170317
  2. ACICLOVIR [Suspect]
     Active Substance: ACYCLOVIR
     Indication: INFLAMMATION
     Route: 042
     Dates: start: 20170219, end: 20170317

REACTIONS (2)
  - Rash maculo-papular [Recovering/Resolving]
  - Exfoliative rash [Recovering/Resolving]

NARRATIVE: CASE EVENT DATE: 20170301
